FAERS Safety Report 13668067 (Version 1)
Quarter: 2017Q2

REPORT INFORMATION
  Report Type: Spontaneous
  Country: US (occurrence: US)
  Receive Date: 20170620
  Receipt Date: 20170620
  Transmission Date: 20170830
  Serious: No
  Sender: FDA-Public Use
  Company Number: US-PFIZER INC-2017264498

PATIENT
  Age: 70 Year
  Sex: Male
  Weight: 66 kg

DRUGS (2)
  1. LYRICA [Suspect]
     Active Substance: PREGABALIN
     Indication: BURNING SENSATION
     Dosage: 75 MG, DAILY (50MG AT NIGHT; 25MG IN THE DAY)
     Dates: start: 201702, end: 20170429
  2. LYRICA [Suspect]
     Active Substance: PREGABALIN
     Indication: PARAESTHESIA
     Dosage: 75 MG, DAILY (50MG AT NIGHT; 25MG IN THE DAY)
     Dates: start: 201702, end: 20170429

REACTIONS (1)
  - Platelet count decreased [Unknown]
